FAERS Safety Report 9669610 (Version 2)
Quarter: 2013Q4

REPORT INFORMATION
  Report Type: Report from Study
  Country: AR (occurrence: AR)
  Receive Date: 20131105
  Receipt Date: 20131204
  Transmission Date: 20140711
  Serious: Yes (Hospitalization, Other)
  Sender: FDA-Public Use
  Company Number: PHHY2013AR125230

PATIENT
  Sex: Female

DRUGS (1)
  1. EXFORGE [Suspect]
     Indication: HYPERTENSION
     Dosage: 1 DF, (80/5 MG) PER DAY
     Route: 048
     Dates: start: 201303

REACTIONS (4)
  - Ankle fracture [Recovering/Resolving]
  - Breast cancer [Recovering/Resolving]
  - Breast mass [Recovering/Resolving]
  - Breast calcifications [Recovering/Resolving]
